FAERS Safety Report 21352815 (Version 1)
Quarter: 2022Q3

REPORT INFORMATION
  Report Type: Spontaneous
  Country: AU (occurrence: AU)
  Receive Date: 20220920
  Receipt Date: 20220920
  Transmission Date: 20221026
  Serious: Yes (Other)
  Sender: FDA-Public Use
  Company Number: AU-JNJFOC-20220913090

PATIENT
  Age: 17 Year
  Sex: Male

DRUGS (7)
  1. INVEGA SUSTENNA [Suspect]
     Active Substance: PALIPERIDONE PALMITATE
     Indication: Product used for unknown indication
     Route: 030
  2. INVEGA SUSTENNA [Suspect]
     Active Substance: PALIPERIDONE PALMITATE
  3. INVEGA SUSTENNA [Suspect]
     Active Substance: PALIPERIDONE PALMITATE
  4. PHENOBARBITAL [Concomitant]
     Active Substance: PHENOBARBITAL
  5. CLONAZEPAM [Concomitant]
     Active Substance: CLONAZEPAM
  6. SEROQUEL [Concomitant]
     Active Substance: QUETIAPINE FUMARATE
  7. CLONIDINE [Concomitant]
     Active Substance: CLONIDINE

REACTIONS (6)
  - Epilepsy [Recovering/Resolving]
  - Psychotic symptom [Unknown]
  - Learning disability [Unknown]
  - Ear infection [Unknown]
  - Off label use [Unknown]
  - Off label use [Unknown]
